FAERS Safety Report 6879405-5 (Version None)
Quarter: 2010Q3

REPORT INFORMATION
  Report Type: 
  Country: None (occurrence: None)
  Receive Date: 20100728
  Receipt Date: 20100715
  Transmission Date: 20110219
  Serious: Yes (Other)
  Sender: FDA-Public Use
  Company Number: US-JNJFOC-20100707927

PATIENT
  Sex: Male

DRUGS (2)
  1. EXTRA STRENGTH TYLENOL PM [Suspect]
     Indication: INSOMNIA
     Route: 048
  2. EXTRA STRENGTH TYLENOL PM [Suspect]
     Indication: PAIN
     Route: 048

REACTIONS (3)
  - HALLUCINATION [None]
  - MUSCLE TWITCHING [None]
  - SOMNAMBULISM [None]
